FAERS Safety Report 8486418-9 (Version None)
Quarter: 2012Q3

REPORT INFORMATION
  Report Type: 
  Country: None (occurrence: None)
  Receive Date: 20120703
  Receipt Date: 20120622
  Transmission Date: 20120928
  Serious: Yes (Hospitalization)
  Sender: FDA-Public Use
  Company Number: US-BAYER-2012-043618

PATIENT
  Age: 77 Year
  Sex: Male
  Weight: 108.84 kg

DRUGS (15)
  1. ASPIRIN [Suspect]
     Indication: CORONARY ARTERY DISEASE
     Dosage: 81 MG, QD
     Route: 048
     Dates: start: 20111027, end: 20120429
  2. PLAVIX [Suspect]
     Dosage: 75 MG, QD
     Route: 048
     Dates: start: 20120508
  3. LANTUS [Concomitant]
     Indication: DIABETES MELLITUS
     Dosage: 44 IU, QD
     Route: 030
     Dates: start: 20101101
  4. FLOMAX [Concomitant]
     Indication: BENIGN PROSTATIC HYPERPLASIA
     Dosage: 0.4 MG, QD
     Route: 048
     Dates: start: 20080101
  5. BLINDED AFLIBERCEPT [Suspect]
     Indication: DIABETIC RETINAL OEDEMA
     Dosage: A TOTAL OF 10 DOSES OF MASKED VEGF OR LASER
     Route: 031
     Dates: start: 20110717
  6. PLAVIX [Suspect]
     Indication: CEREBROVASCULAR ACCIDENT
     Dosage: 75 MG, QD
     Route: 048
     Dates: end: 20120429
  7. ASPIRIN [Suspect]
     Dosage: 81 MG, QD
     Route: 048
     Dates: start: 20120508
  8. OPHTHALMOLOGICALS [Concomitant]
     Indication: DRY EYE
     Dosage: 1 GTT, PRN
  9. NOVOLOG [Concomitant]
     Indication: DIABETES MELLITUS
     Dosage: 12 IU, UNK
     Route: 030
     Dates: start: 20101101
  10. CLONIDINE [Concomitant]
     Indication: HYPERTENSION
     Dosage: 0.1 MG, QD
     Route: 048
     Dates: start: 20110401
  11. VIGRAN [Concomitant]
     Indication: MEDICAL DIET
     Dosage: 1 DF, QD
     Route: 048
     Dates: start: 20110401
  12. COUMADIN [Suspect]
     Indication: CEREBROVASCULAR ACCIDENT
     Dosage: 6 MG, QD
     Route: 048
     Dates: start: 20101101, end: 20120429
  13. CARTIA XT [Concomitant]
     Indication: HYPERTENSION
     Dosage: 300 MG, QD
     Route: 048
     Dates: start: 20110301
  14. ATIVAN [Concomitant]
     Indication: ANXIETY
     Dosage: 0.5 MG, PRN
     Route: 048
     Dates: start: 20110501
  15. NIFEREX [Concomitant]
     Indication: ANAEMIA PROPHYLAXIS
     Dosage: 150 MG, BID
     Route: 048
     Dates: start: 20110301

REACTIONS (2)
  - GASTROINTESTINAL HAEMORRHAGE [None]
  - ANAEMIA [None]
